FAERS Safety Report 8455556-9 (Version None)
Quarter: 2012Q2

REPORT INFORMATION
  Report Type: 
  Country: None (occurrence: None)
  Receive Date: 20120621
  Receipt Date: 20120612
  Transmission Date: 20120825
  Serious: Yes (Other)
  Sender: FDA-Public Use
  Company Number: US-MYLANLABS-2012S1010042

PATIENT
  Age: 17 Year
  Sex: Female

DRUGS (2)
  1. ORAL CONTRACEPTIVE NOS [Concomitant]
  2. AMNESTEEM [Suspect]
     Route: 048
     Dates: start: 20120401, end: 20120101

REACTIONS (2)
  - ABORTION INDUCED [None]
  - MATERNAL EXPOSURE DURING PREGNANCY [None]
